FAERS Safety Report 5833229-6 (Version None)
Quarter: 2008Q3

REPORT INFORMATION
  Report Type: 
  Country: None (occurrence: None)
  Receive Date: 20080805
  Receipt Date: 20080731
  Transmission Date: 20090109
  Serious: Yes (Other)
  Sender: FDA-Public Use
  Company Number: JP-BRISTOL-MYERS SQUIBB COMPANY-14280473

PATIENT
  Age: 19 Year
  Sex: Male

DRUGS (4)
  1. CYCLOPHOSPHAMIDE [Suspect]
     Indication: WEGENER'S GRANULOMATOSIS
     Route: 042
  2. CYCLOSPORINE [Suspect]
     Indication: WEGENER'S GRANULOMATOSIS
     Route: 048
  3. METHYLPREDNISOLONE [Suspect]
     Indication: WEGENER'S GRANULOMATOSIS
  4. PREDNISOLONE [Suspect]
     Indication: WEGENER'S GRANULOMATOSIS
     Route: 048

REACTIONS (3)
  - HEPATOTOXICITY [None]
  - NOCARDIOSIS [None]
  - WEGENER'S GRANULOMATOSIS [None]
